FAERS Safety Report 21330269 (Version 1)
Quarter: 2022Q3

REPORT INFORMATION
  Report Type: Spontaneous
  Country: DE (occurrence: DE)
  Receive Date: 20220913
  Receipt Date: 20220913
  Transmission Date: 20221026
  Serious: Yes (Hospitalization)
  Sender: FDA-Public Use
  Company Number: DE-Eisai Medical Research-EC-2022-122983

PATIENT
  Age: 4 Year
  Sex: Male
  Weight: 13.2 kg

DRUGS (1)
  1. FYCOMPA [Suspect]
     Active Substance: PERAMPANEL
     Indication: Accidental exposure to product by child
     Route: 048
     Dates: start: 20220903, end: 20220903

REACTIONS (12)
  - Stupor [Recovered/Resolved]
  - Confusional state [Recovering/Resolving]
  - Vomiting [Recovered/Resolved]
  - Somnolence [Recovering/Resolving]
  - Fatigue [Recovered/Resolved]
  - Ataxia [Recovered/Resolved]
  - Loss of consciousness [Recovered/Resolved]
  - Psychomotor skills impaired [Recovering/Resolving]
  - Dizziness [Recovering/Resolving]
  - Gait disturbance [Not Recovered/Not Resolved]
  - Accidental exposure to product by child [Recovering/Resolving]
  - Accidental overdose [Recovering/Resolving]

NARRATIVE: CASE EVENT DATE: 20220901
